FAERS Safety Report 6551293-6 (Version None)
Quarter: 2010Q1

REPORT INFORMATION
  Report Type: 
  Country: None (occurrence: None)
  Receive Date: 20100126
  Receipt Date: 20100112
  Transmission Date: 20100710
  Serious: Yes (Other)
  Sender: FDA-Public Use
  Company Number: US-RB-000994-10

PATIENT
  Age: 77 Year
  Sex: Female

DRUGS (1)
  1. MUCINEX [Suspect]
     Dosage: TAKING 1 TABLET TWICE DAILY FOR 7 DAYS
     Route: 048
     Dates: start: 20100105

REACTIONS (1)
  - EPISTAXIS [None]
